FAERS Safety Report 8941741 (Version 1)
Quarter: 2012Q4

REPORT INFORMATION
  Report Type: 
  Country: JP (occurrence: JP)
  Receive Date: 20121203
  Receipt Date: 20121203
  Transmission Date: 20130627
  Serious: Yes (Hospitalization)
  Sender: FDA-Public Use
  Company Number: PHHY2010JP75162

PATIENT
  Age: 77 Year
  Sex: Male
  Weight: 51 kg

DRUGS (14)
  1. AFINITOR [Suspect]
     Indication: METASTATIC RENAL CELL CARCINOMA
     Dosage: 10 mg, QD
     Route: 048
     Dates: start: 20100821, end: 20100828
  2. AFINITOR [Suspect]
     Dosage: 5 mg, QD
     Route: 048
     Dates: start: 20100911, end: 20100922
  3. ZOMETA [Concomitant]
     Dosage: UNK
     Route: 041
     Dates: start: 20100312
  4. INTERFERON ALFA [Concomitant]
     Indication: METASTATIC RENAL CELL CARCINOMA
     Dosage: 3000000DF
     Route: 042
     Dates: start: 20070305, end: 200705
  5. INTERFERON ALFA [Concomitant]
     Dosage: 600000019DF
     Route: 042
     Dates: start: 20070305, end: 200705
  6. TECELEUKIN [Concomitant]
     Indication: METASTATIC RENAL CELL CARCINOMA
     Dosage: 3500000DF
     Route: 042
     Dates: start: 20080602, end: 200812
  7. TECELEUKIN [Concomitant]
     Dosage: 3500000DF
     Route: 042
     Dates: start: 20080602, end: 200812
  8. SUNITINIB MALATE [Concomitant]
     Indication: METASTATIC RENAL CELL CARCINOMA
     Dosage: 37.5mg
     Route: 048
     Dates: start: 20090113, end: 20100914
  9. SUNITINIB MALATE [Concomitant]
     Dosage: 25mg
     Route: 048
     Dates: start: 20090113, end: 20100914
  10. SORAFENIB TOSILATE [Concomitant]
     Indication: METASTATIC RENAL CELL CARCINOMA
     Dosage: 800 mg
     Route: 048
     Dates: start: 20080613, end: 20100806
  11. SORAFENIB TOSILATE [Concomitant]
     Dosage: 400 mg
     Route: 048
     Dates: start: 20080613, end: 20100806
  12. SORAFENIB TOSILATE [Concomitant]
     Dosage: 400 mg
     Route: 048
     Dates: start: 20080613, end: 20100806
  13. OXYCONTIN [Concomitant]
     Dosage: 160 mg
     Route: 048
     Dates: start: 20100303, end: 20101004
  14. BROTIZOLAM [Concomitant]
     Indication: METASTATIC RENAL CELL CARCINOMA
     Dosage: 0.25mg
     Route: 048
     Dates: start: 20100601, end: 20100929

REACTIONS (1)
  - Pneumonia aspiration [Recovered/Resolved]
